FAERS Safety Report 9394311 (Version 1)
Quarter: 2013Q3

REPORT INFORMATION
  Report Type: Report from Study
  Country: CN (occurrence: CN)
  Receive Date: 20130711
  Receipt Date: 20130711
  Transmission Date: 20140515
  Serious: Yes (Death, Other)
  Sender: FDA-Public Use
  Company Number: CN-ROCHE-1244417

PATIENT
  Age: 42 Year
  Sex: Male

DRUGS (6)
  1. MYCOPHENOLATE MOFETIL [Suspect]
     Indication: IMMUNOSUPPRESSION
     Route: 065
  2. TACROLIMUS [Concomitant]
  3. ERLOTINIB [Concomitant]
     Route: 065
  4. PEMETREXED [Concomitant]
  5. GEMCITABINE [Concomitant]
  6. CISPLATIN [Concomitant]

REACTIONS (1)
  - Neoplasm recurrence [Fatal]
